FAERS Safety Report 22066738 (Version 1)
Quarter: 2023Q1

REPORT INFORMATION
  Report Type: Spontaneous
  Country: None (occurrence: CA)
  Receive Date: 20230306
  Receipt Date: 20230306
  Transmission Date: 20230417
  Serious: Yes (Hospitalization)
  Sender: FDA-Public Use
  Company Number: CA-B.Braun Medical Inc.-2138736

PATIENT
  Age: 35 Year
  Sex: Male

DRUGS (5)
  1. SODIUM CHLORIDE [Suspect]
     Active Substance: SODIUM CHLORIDE
  2. CLOZAPINE [Suspect]
     Active Substance: CLOZAPINE
  3. OLANZAPINE [Suspect]
     Active Substance: OLANZAPINE
  4. PALIPERIDONE [Suspect]
     Active Substance: PALIPERIDONE
  5. ATROPINE [Concomitant]
     Active Substance: ATROPINE

REACTIONS (6)
  - Confusional state [Unknown]
  - Hyperhidrosis [Unknown]
  - Pain [Unknown]
  - Rhabdomyolysis [Unknown]
  - Tachycardia [Unknown]
  - Tremor [Unknown]
